FAERS Safety Report 12395842 (Version 1)
Quarter: 2016Q2

REPORT INFORMATION
  Report Type: Report from Study
  Country: DK (occurrence: DE)
  Receive Date: 20160523
  Receipt Date: 20160523
  Transmission Date: 20160815
  Serious: Yes (Other)
  Sender: FDA-Public Use
  Company Number: DE-FRI-1000084864

PATIENT
  Age: 85 Year
  Sex: Male

DRUGS (12)
  1. MELPERON [Suspect]
     Active Substance: MELPERONE
     Route: 048
     Dates: start: 20150109
  2. ATORVASTATIN [Concomitant]
     Active Substance: ATORVASTATIN
     Indication: PRODUCT USED FOR UNKNOWN INDICATION
     Route: 048
  3. MELPERON [Suspect]
     Active Substance: MELPERONE
     Route: 048
     Dates: start: 20150102, end: 20150102
  4. MELPERON [Suspect]
     Active Substance: MELPERONE
     Route: 048
     Dates: start: 20150105, end: 20150105
  5. TORASEMID [Suspect]
     Active Substance: TORSEMIDE
     Indication: PRODUCT USED FOR UNKNOWN INDICATION
     Route: 048
     Dates: end: 20150107
  6. CITALOPRAM [Suspect]
     Active Substance: CITALOPRAM HYDROBROMIDE
     Indication: PRODUCT USED FOR UNKNOWN INDICATION
     Dosage: UNKNOWN
     Route: 048
     Dates: start: 20150103
  7. MELPERON [Suspect]
     Active Substance: MELPERONE
     Route: 048
     Dates: start: 20150104, end: 20150104
  8. BISOPROLOL [Suspect]
     Active Substance: BISOPROLOL
     Indication: PRODUCT USED FOR UNKNOWN INDICATION
     Route: 048
     Dates: end: 20150107
  9. DONEZEPIL [Concomitant]
     Active Substance: DONEPEZIL
     Indication: PRODUCT USED FOR UNKNOWN INDICATION
     Route: 048
  10. MELPERON [Suspect]
     Active Substance: MELPERONE
     Indication: PRODUCT USED FOR UNKNOWN INDICATION
     Route: 048
     Dates: start: 20141028, end: 20150101
  11. MELPERON [Suspect]
     Active Substance: MELPERONE
     Route: 048
     Dates: start: 20150103, end: 20150103
  12. AMIODARON [Concomitant]
     Active Substance: AMIODARONE
     Indication: PRODUCT USED FOR UNKNOWN INDICATION
     Route: 048

REACTIONS (1)
  - Loss of consciousness [Recovered/Resolved]

NARRATIVE: CASE EVENT DATE: 20150105
